FAERS Safety Report 9995544 (Version 2)
Quarter: 2014Q2

REPORT INFORMATION
  Report Type: Spontaneous
  Country: FR (occurrence: None)
  Receive Date: 20140307
  Receipt Date: 20140408
  Transmission Date: 20141212
  Serious: Yes (Other)
  Sender: FDA-Public Use
  Company Number: DE-SEPTODONT-201401765

PATIENT
  Age: 5 Year
  Sex: Female

DRUGS (3)
  1. ORAVERSE [Suspect]
     Indication: ANAESTHESIA REVERSAL
     Route: 004
  2. CITALOPRAM [Concomitant]
  3. ALIVIUM (IBUPROFEN) [Concomitant]

REACTIONS (5)
  - Cardiovascular disorder [None]
  - Injection site pain [None]
  - Injection site reaction [None]
  - Dizziness [None]
  - Headache [None]
